FAERS Safety Report 8810125 (Version 1)
Quarter: 2012Q4

REPORT INFORMATION
  Report Type: 
  Country: US (occurrence: US)
  Receive Date: 20120926
  Receipt Date: 20120926
  Transmission Date: 20130627
  Serious: Yes (Other)
  Sender: FDA-Public Use
  Company Number: US-ASTRAZENECA-2012SE72419

PATIENT
  Age: 46 Year
  Sex: Female

DRUGS (18)
  1. SYMBICORT [Suspect]
     Indication: CHRONIC OBSTRUCTIVE PULMONARY DISEASE
     Route: 055
  2. NEXIUM [Suspect]
     Route: 048
  3. ADVAIR [Suspect]
     Indication: CHRONIC OBSTRUCTIVE PULMONARY DISEASE
     Route: 055
     Dates: start: 200707
  4. LORCET [Concomitant]
  5. PERCOCET [Concomitant]
  6. POTASSIUM CHLORIDE [Concomitant]
  7. IPRATROPIUM BROMIDE [Concomitant]
  8. FORMOTEROL [Concomitant]
  9. FLECAINIDE ACETATE [Concomitant]
  10. TEGRETOL-XR [Concomitant]
  11. VALSARTAN [Concomitant]
  12. NORETHISTERONE ACETATE [Concomitant]
  13. AMLODIPINE [Concomitant]
  14. BENZONATATE [Concomitant]
  15. VITAMIN D [Concomitant]
  16. CARISOPRODOL [Concomitant]
  17. CYCLOBENZAPRINE HCL [Concomitant]
  18. BACLOFEN [Concomitant]

REACTIONS (6)
  - Aphasia [Recovered/Resolved]
  - Dysphonia [Recovered/Resolved]
  - Oral pain [Recovered/Resolved]
  - Oral candidiasis [Recovered/Resolved]
  - Condition aggravated [Recovered/Resolved]
  - Drug ineffective [Recovered/Resolved]
